FAERS Safety Report 8285065-1 (Version None)
Quarter: 2012Q2

REPORT INFORMATION
  Report Type: 
  Country: None (occurrence: None)
  Receive Date: 20120413
  Receipt Date: 20110818
  Transmission Date: 20120825
  Serious: No
  Sender: FDA-Public Use
  Company Number: US-ASTRAZENECA-2011SE49619

PATIENT
  Sex: Male

DRUGS (5)
  1. NEXIUM [Suspect]
     Indication: GASTROOESOPHAGEAL REFLUX DISEASE
     Route: 048
     Dates: start: 20090101
  2. GLUCOSAMINE [Concomitant]
  3. NEXIUM [Suspect]
     Indication: IRRITABLE BOWEL SYNDROME
     Route: 048
     Dates: start: 20090101
  4. FISH OIL [Concomitant]
  5. NEXIUM [Suspect]
     Route: 048
     Dates: start: 20090101

REACTIONS (4)
  - ARTHRITIS [None]
  - JOINT DISLOCATION [None]
  - OFF LABEL USE [None]
  - CARTILAGE ATROPHY [None]
